FAERS Safety Report 11118891 (Version 1)
Quarter: 2015Q2

REPORT INFORMATION
  Report Type: Spontaneous
  Country: US (occurrence: None)
  Receive Date: 20150515
  Receipt Date: 20150515
  Transmission Date: 20150821
  Serious: Yes (Other)
  Sender: FDA-Public Use
  Company Number: None

PATIENT
  Age: 84 Year
  Sex: Female
  Weight: 79.38 kg

DRUGS (8)
  1. PRADAXA [Suspect]
     Active Substance: DABIGATRAN ETEXILATE MESYLATE
     Indication: THROMBOSIS
     Dosage: 1 PILL A.M. + 1 PILL P.M., TWICE DAILY, TAKEN BY MOUTH
     Route: 048
  2. OXYBUTYNIN CL ER [Concomitant]
     Active Substance: OXYBUTYNIN CHLORIDE
  3. DIGOXIN. [Concomitant]
     Active Substance: DIGOXIN
  4. SPIRONOLACTON [Concomitant]
     Active Substance: SPIRONOLACTONE
  5. CEPHALEXIN. [Concomitant]
     Active Substance: CEPHALEXIN
  6. PRESERVISION [Concomitant]
     Active Substance: MINERALS\VITAMINS
  7. VITAMIN D [Concomitant]
     Active Substance: CHOLECALCIFEROL
  8. LIPITOR [Concomitant]
     Active Substance: ATORVASTATIN CALCIUM

REACTIONS (3)
  - Visual acuity reduced [None]
  - Weight decreased [None]
  - Dyspepsia [None]

NARRATIVE: CASE EVENT DATE: 20150305
